FAERS Safety Report 5759787-8 (Version None)
Quarter: 2008Q2

REPORT INFORMATION
  Report Type: 
  Country: None (occurrence: None)
  Receive Date: 20080605
  Receipt Date: 20080529
  Transmission Date: 20081010
  Serious: Yes (Death)
  Sender: FDA-Public Use
  Company Number: B0523111A

PATIENT
  Age: 86 Year
  Sex: Male

DRUGS (8)
  1. ARIXTRA [Suspect]
     Indication: DRUG USE FOR UNKNOWN INDICATION
     Dosage: 2.5MG PER DAY
     Route: 058
     Dates: start: 20080421, end: 20080503
  2. PAROXETINE HCL [Suspect]
     Indication: DRUG USE FOR UNKNOWN INDICATION
     Dosage: 10MG PER DAY
     Route: 048
     Dates: end: 20080503
  3. AMLOR [Concomitant]
     Dosage: 5MG PER DAY
     Route: 048
  4. TRIATEC [Concomitant]
     Dosage: 5MG TWICE PER DAY
     Route: 048
  5. ACETAMINOPHEN [Concomitant]
     Dosage: 500MG SIX TIMES PER DAY
     Route: 048
  6. DIGITALINE NATIVELLE [Concomitant]
     Route: 048
  7. LYRICA [Concomitant]
     Dosage: 25MG PER DAY
     Route: 048
  8. IMOVANE [Concomitant]
     Dosage: 7.5MG PER DAY
     Route: 048

REACTIONS (6)
  - DRUG INTERACTION [None]
  - EATING DISORDER [None]
  - HAEMOGLOBIN DECREASED [None]
  - MUSCLE HAEMORRHAGE [None]
  - RENAL FAILURE [None]
  - SHOCK HAEMORRHAGIC [None]
